FAERS Safety Report 11739441 (Version 1)
Quarter: 2015Q4

REPORT INFORMATION
  Report Type: Spontaneous
  Country: IT (occurrence: IT)
  Receive Date: 20151113
  Receipt Date: 20151113
  Transmission Date: 20160304
  Serious: Yes (Other)
  Sender: FDA-Public Use
  Company Number: IT-TEVA-606319ACC

PATIENT
  Age: 38 Year
  Sex: Male

DRUGS (4)
  1. XANAX [Suspect]
     Active Substance: ALPRAZOLAM
     Indication: PRODUCT USED FOR UNKNOWN INDICATION
     Dosage: 30 DF TOTAL
     Route: 048
  2. CITALOPRAM HYDROBROMIDE. [Suspect]
     Active Substance: CITALOPRAM HYDROBROMIDE
     Indication: PRODUCT USED FOR UNKNOWN INDICATION
     Dosage: 400 MG TOTAL
     Route: 048
  3. DEPAKIN CHRONO - 500 MG COMPRESSE A RILASCIO PROLUNGATO [Suspect]
     Active Substance: VALPROATE SODIUM
     Indication: PRODUCT USED FOR UNKNOWN INDICATION
     Dosage: 4 DF TOTAL
     Route: 048
  4. TAVOR [Suspect]
     Active Substance: LORAZEPAM
     Indication: PRODUCT USED FOR UNKNOWN INDICATION
     Dosage: 20 DF TOTAL
     Route: 048

REACTIONS (4)
  - Toxicity to various agents [Unknown]
  - Refusal of treatment by patient [None]
  - Drug abuse [Unknown]
  - Poverty of speech [Unknown]

NARRATIVE: CASE EVENT DATE: 20150904
